FAERS Safety Report 6672124-X (Version None)
Quarter: 2010Q2

REPORT INFORMATION
  Report Type: 
  Country: None (occurrence: None)
  Receive Date: 20100407
  Receipt Date: 20100407
  Transmission Date: 20101027
  Serious: Yes (Disabling)
  Sender: FDA-Public Use
  Company Number: None

PATIENT
  Sex: Male
  Weight: 70.3075 kg

DRUGS (6)
  1. HYDRALAZINE HCL [Suspect]
     Indication: HYPERTENSION
     Dates: start: 20100306, end: 20100316
  2. SIMVASTATIN [Concomitant]
  3. PLAVIX [Concomitant]
  4. SPIRONOLACTONE [Concomitant]
  5. FEXOFENADINE [Concomitant]
  6. RANITIDINE [Concomitant]

REACTIONS (2)
  - BLOOD PRESSURE SYSTOLIC INCREASED [None]
  - PRODUCT SUBSTITUTION ISSUE [None]
